FAERS Safety Report 9925743 (Version 1)
Quarter: 2014Q1

REPORT INFORMATION
  Report Type: Spontaneous
  Country: US (occurrence: US)
  Receive Date: 20140226
  Receipt Date: 20140226
  Transmission Date: 20141002
  Serious: Yes (Death, Congenital Anomaly)
  Sender: FDA-Public Use
  Company Number: US-FRI-1000054610

PATIENT
  Age: 0 Day
  Sex: Female

DRUGS (1)
  1. LEXAPRO [Suspect]
     Route: 064
     Dates: end: 20110419

REACTIONS (3)
  - Atrial septal defect [Fatal]
  - Ventricular septal defect [Fatal]
  - Patent ductus arteriosus [Fatal]
